FAERS Safety Report 16983324 (Version 1)
Quarter: 2019Q4

REPORT INFORMATION
  Report Type: Spontaneous
  Country: US (occurrence: US)
  Receive Date: 20191030
  Receipt Date: 20191030
  Transmission Date: 20200122
  Serious: No
  Sender: FDA-Public Use
  Company Number: None

PATIENT
  Age: 47 Year
  Sex: Female
  Weight: 99 kg

DRUGS (10)
  1. FLUOXATINE [Concomitant]
  2. DETERRA ON GUARD BEADLETS [Concomitant]
  3. EXCEDRIN MIGRAINE [Concomitant]
     Active Substance: ACETAMINOPHEN\ASPIRIN\CAFFEINE
  4. PEPPERMINT ESSENTIAL OIL [Concomitant]
  5. BREO ELLIPTA [Suspect]
     Active Substance: FLUTICASONE FUROATE\VILANTEROL TRIFENATATE
     Indication: ASTHMA
     Dosage: ?          QUANTITY:1 INHALATION(S);?
     Route: 055
     Dates: start: 20191004
  6. SYNBIOTIC 365 [Concomitant]
  7. ALBUTEROL. [Concomitant]
     Active Substance: ALBUTEROL
  8. CETIRIZINE [Concomitant]
     Active Substance: CETIRIZINE HYDROCHLORIDE
  9. COPAIBA ESSENTIAL OIL SOFT GELS [Concomitant]
  10. DOTERRA ZENDOCRINE DETOX BLEND [Concomitant]

REACTIONS (5)
  - Dysphonia [None]
  - Vision blurred [None]
  - Heart rate increased [None]
  - Fatigue [None]
  - Headache [None]

NARRATIVE: CASE EVENT DATE: 20191015
